FAERS Safety Report 5181130-6 (Version None)
Quarter: 2006Q4

REPORT INFORMATION
  Report Type: 
  Country: None (occurrence: None)
  Receive Date: 20061215
  Receipt Date: 20061215
  Transmission Date: 20070319
  Serious: Yes (Other)
  Sender: FDA-Public Use
  Company Number: None

PATIENT
  Age: 52 Year
  Sex: Male
  Weight: 90.7194 kg

DRUGS (1)
  1. ELIDEL [Suspect]
     Indication: ECZEMA
     Dosage: LIGHT 2X CUTANEOUS
     Route: 003
     Dates: start: 20040211, end: 20061212

REACTIONS (1)
  - IMMUNE SYSTEM DISORDER [None]
